FAERS Safety Report 11796903 (Version 1)
Quarter: 2015Q4

REPORT INFORMATION
  Report Type: Spontaneous
  Country: US (occurrence: US)
  Receive Date: 20151203
  Receipt Date: 20151203
  Transmission Date: 20160305
  Serious: No
  Sender: FDA-Public Use
  Company Number: US-MEDA-2015110098

PATIENT
  Age: 5 Year
  Sex: Female

DRUGS (1)
  1. ASTELIN [Suspect]
     Active Substance: AZELASTINE HYDROCHLORIDE
     Indication: RHINITIS ALLERGIC

REACTIONS (3)
  - Retching [Unknown]
  - Dysgeusia [Unknown]
  - Vomiting [Unknown]
